FAERS Safety Report 25443795 (Version 1)
Quarter: 2025Q2

REPORT INFORMATION
  Report Type: Report from Study
  Country: CA (occurrence: CA)
  Receive Date: 20250617
  Receipt Date: 20250617
  Transmission Date: 20250717
  Serious: Yes (Other)
  Sender: LEO PHARM
  Company Number: CA-LEO Pharma-374820

PATIENT
  Age: 23 Year
  Sex: Female

DRUGS (2)
  1. ADBRY [Suspect]
     Active Substance: TRALOKINUMAB-LDRM
     Indication: Dermatitis atopic
     Route: 058
     Dates: start: 20240124
  2. ADBRY [Suspect]
     Active Substance: TRALOKINUMAB-LDRM
     Indication: Dermatitis atopic
     Dosage: MAINTENANCE DOSE: 300MG Q2WEEKS SC; FORMAT: 150 MG/ML PRE-FILLED SYRINGE
     Route: 058

REACTIONS (1)
  - Neurogenic shock [Unknown]

NARRATIVE: CASE EVENT DATE: 20241112
